FAERS Safety Report 6871361-9 (Version None)
Quarter: 2010Q3

REPORT INFORMATION
  Report Type: 
  Country: None (occurrence: None)
  Receive Date: 20100723
  Receipt Date: 20100714
  Transmission Date: 20110219
  Serious: Yes (Other)
  Sender: FDA-Public Use
  Company Number: CN-PFIZER INC-2010087445

PATIENT
  Age: 55 Year
  Sex: Female

DRUGS (1)
  1. GLUCOTROL [Suspect]
     Indication: BLOOD GLUCOSE INCREASED
     Dosage: 5 MG, DAILY
     Route: 048
     Dates: start: 20100101, end: 20100701

REACTIONS (1)
  - BLOOD GLUCOSE INCREASED [None]
